FAERS Safety Report 18424033 (Version 3)
Quarter: 2020Q4

REPORT INFORMATION
  Report Type: Spontaneous
  Country: JP (occurrence: JP)
  Receive Date: 20201025
  Receipt Date: 20201129
  Transmission Date: 20210114
  Serious: Yes (Death)
  Sender: FDA-Public Use
  Company Number: JP-UCBSA-2020041850

PATIENT
  Age: 88 Year
  Sex: Male
  Weight: 44 kg

DRUGS (3)
  1. DEPAKENE-R [Concomitant]
     Active Substance: VALPROATE SODIUM
     Indication: FOCAL DYSCOGNITIVE SEIZURES
     Dosage: 600 MG DAILY
     Route: 048
     Dates: end: 20171025
  2. DEPAKENE-R [Concomitant]
     Active Substance: VALPROATE SODIUM
     Dosage: 400 MG DAILY
     Route: 048
     Dates: start: 20171026
  3. VIMPAT [Suspect]
     Active Substance: LACOSAMIDE
     Indication: FOCAL DYSCOGNITIVE SEIZURES
     Dosage: 50 MILLIGRAM, 2X/DAY (BID)
     Route: 048
     Dates: start: 20171017

REACTIONS (2)
  - Dehydration [Fatal]
  - Feeding disorder [Unknown]

NARRATIVE: CASE EVENT DATE: 20180816
